FAERS Safety Report 8116801-2 (Version None)
Quarter: 2012Q1

REPORT INFORMATION
  Report Type: 
  Country: None (occurrence: None)
  Receive Date: 20120206
  Receipt Date: 20120131
  Transmission Date: 20120608
  Serious: Yes (Death)
  Sender: FDA-Public Use
  Company Number: PHHY2012JP009027

PATIENT
  Age: 79 Year
  Sex: Female

DRUGS (1)
  1. RIVASTIGMINE [Suspect]
     Indication: DEMENTIA ALZHEIMER'S TYPE
     Dosage: 4.5 MG/24 HOURS
     Route: 062
     Dates: start: 20111229

REACTIONS (2)
  - BLOOD SODIUM DECREASED [None]
  - ADRENAL INSUFFICIENCY [None]
